FAERS Safety Report 20832304 (Version 12)
Quarter: 2025Q4

REPORT INFORMATION
  Report Type: Report from Study
  Country: US (occurrence: US)
  Receive Date: 20220516
  Receipt Date: 20251006
  Transmission Date: 20260117
  Serious: Yes (Other)
  Sender: TAKEDA
  Company Number: US-TAKEDA-US202002841

PATIENT
  Sex: Female

DRUGS (6)
  1. HUMAN IMMUNOGLOBULIN G [Suspect]
     Active Substance: HUMAN IMMUNOGLOBULIN G
     Indication: Primary immunodeficiency syndrome
     Dosage: 8 GRAM
  2. HUMAN IMMUNOGLOBULIN G [Suspect]
     Active Substance: HUMAN IMMUNOGLOBULIN G
     Indication: Immunodeficiency common variable
     Dosage: UNK
  3. HYQVIA [Suspect]
     Active Substance: HUMAN IMMUNOGLOBULIN G\HYALURONIDASE (HUMAN RECOMBINANT)
     Indication: Primary immunodeficiency syndrome
     Dosage: UNK
  4. HYQVIA [Suspect]
     Active Substance: HUMAN IMMUNOGLOBULIN G\HYALURONIDASE (HUMAN RECOMBINANT)
     Indication: Immunodeficiency common variable
  5. GAMMAGARD LIQUID [Suspect]
     Active Substance: HUMAN IMMUNOGLOBULIN G
     Indication: Primary immunodeficiency syndrome
     Dosage: 7 GRAM
  6. GAMMAGARD LIQUID [Suspect]
     Active Substance: HUMAN IMMUNOGLOBULIN G
     Indication: Immunodeficiency common variable
     Dosage: UNK

REACTIONS (29)
  - Myocarditis [Not Recovered/Not Resolved]
  - Pneumonia [Unknown]
  - Product use issue [Unknown]
  - Insurance issue [Unknown]
  - Heart rate increased [Recovered/Resolved]
  - Swelling [Recovered/Resolved]
  - Chest pain [Recovered/Resolved]
  - Cough [Unknown]
  - Migraine [Unknown]
  - Urticaria [Recovered/Resolved]
  - Illness [Unknown]
  - Protein total increased [Unknown]
  - Fall [Unknown]
  - Joint stiffness [Unknown]
  - Urticaria chronic [Unknown]
  - Upper respiratory tract infection [Not Recovered/Not Resolved]
  - Feeling abnormal [Unknown]
  - Asthma [Unknown]
  - Arthralgia [Unknown]
  - Pruritus [Unknown]
  - Inability to afford medication [Unknown]
  - Product dose omission issue [Unknown]
  - Extra dose administered [Unknown]
  - Bronchitis [Unknown]
  - Sinusitis [Unknown]
  - Influenza [Unknown]
  - Anti-GAD antibody positive [Unknown]
  - Infusion site discomfort [Unknown]
  - Dyspnoea [Unknown]

NARRATIVE: CASE EVENT DATE: 20240702
